FAERS Safety Report 6404782-9 (Version None)
Quarter: 2009Q4

REPORT INFORMATION
  Report Type: 
  Country: None (occurrence: None)
  Receive Date: 20091016
  Receipt Date: 20091012
  Transmission Date: 20100525
  Serious: Yes (Death)
  Sender: FDA-Public Use
  Company Number: PHHY2009NL44498

PATIENT
  Age: 81 Year
  Sex: Female
  Weight: 89 kg

DRUGS (1)
  1. DIOVAN [Suspect]
     Dosage: 160 MG, UNK

REACTIONS (3)
  - BLOOD PRESSURE DIASTOLIC DECREASED [None]
  - DEATH [None]
  - TREATMENT NONCOMPLIANCE [None]
